FAERS Safety Report 5211798-7 (Version None)
Quarter: 2007Q1

REPORT INFORMATION
  Report Type: 
  Country: None (occurrence: None)
  Receive Date: 20070116
  Receipt Date: 20070116
  Transmission Date: 20070707
  Serious: Yes (Hospitalization)
  Sender: FDA-Public Use
  Company Number: None

PATIENT
  Age: 49 Year
  Sex: Male
  Weight: 93.7 kg

DRUGS (4)
  1. BEVACIZUMAB [Suspect]
     Indication: METASTATIC RENAL CELL CARCINOMA
     Dosage: 937 MG Q 14 DAYS IV
     Route: 042
     Dates: start: 20061205
  2. BEVACIZUMAB [Suspect]
     Indication: METASTATIC RENAL CELL CARCINOMA
     Dosage: 937 MG Q 14 DAYS IV
     Route: 042
     Dates: start: 20061219
  3. BEVACIZUMAB [Suspect]
     Indication: METASTATIC RENAL CELL CARCINOMA
     Dosage: 937 MG Q 14 DAYS IV
     Route: 042
     Dates: start: 20070102
  4. PROLEUKIN [Suspect]
     Indication: METASTATIC RENAL CELL CARCINOMA
     Dosage: 11.7 MIU X 5 DAYS/WEEK
     Dates: start: 20061219, end: 20070110

REACTIONS (2)
  - CHEST PAIN [None]
  - PNEUMONIA [None]
